FAERS Safety Report 7148347-2 (Version None)
Quarter: 2010Q4

REPORT INFORMATION
  Report Type: 
  Country: None (occurrence: None)
  Receive Date: 20101209
  Receipt Date: 20101202
  Transmission Date: 20110411
  Serious: Yes (Other)
  Sender: FDA-Public Use
  Company Number: FR-NOVOPROD-316981

PATIENT
  Age: 44 Year
  Sex: Male
  Weight: 77 kg

DRUGS (3)
  1. VICTOZA [Suspect]
     Indication: TYPE 2 DIABETES MELLITUS
     Dosage: 0.6 MG, QD
     Route: 058
     Dates: start: 20100618
  2. VICTOZA [Suspect]
     Dosage: 1.2 MG, QD
     Route: 058
     Dates: start: 20100101, end: 20101022
  3. METFORMIN [Concomitant]

REACTIONS (2)
  - CONDITION AGGRAVATED [None]
  - HEPATIC CIRRHOSIS [None]
